FAERS Safety Report 17008690 (Version 2)
Quarter: 2019Q4

REPORT INFORMATION
  Report Type: Spontaneous
  Country: US (occurrence: US)
  Receive Date: 20191108
  Receipt Date: 20191129
  Transmission Date: 20200122
  Serious: No
  Sender: FDA-Public Use
  Company Number: US-TEVA-2019-US-1133220

PATIENT
  Sex: Female

DRUGS (5)
  1. SYNRIBO [Suspect]
     Active Substance: OMACETAXINE MEPESUCCINATE
     Dosage: DOSE:2.4 MG/0.69ML
     Route: 065
     Dates: start: 20191025
  2. EXCEDRIN [Concomitant]
     Active Substance: ACETAMINOPHEN\ASPIRIN\CAFFEINE
     Indication: MIGRAINE
  3. ADVIL [Concomitant]
     Active Substance: IBUPROFEN
  4. CENTRUM [Concomitant]
     Active Substance: VITAMINS
  5. SYNRIBO [Suspect]
     Active Substance: OMACETAXINE MEPESUCCINATE
     Indication: CHRONIC MYELOID LEUKAEMIA
     Dosage: DOSE:2.4 MG/0.69ML
     Route: 065
     Dates: start: 20191029

REACTIONS (3)
  - Fatigue [Unknown]
  - Injection site erythema [Unknown]
  - Laboratory test abnormal [Unknown]
